FAERS Safety Report 15606753 (Version 1)
Quarter: 2018Q4

REPORT INFORMATION
  Report Type: Spontaneous
  Country: US (occurrence: US)
  Receive Date: 20181112
  Receipt Date: 20181112
  Transmission Date: 20190205
  Serious: Yes (Other)
  Sender: FDA-Public Use
  Company Number: US-MYLANLABS-2018M1084175

PATIENT
  Age: 48 Year
  Sex: Female

DRUGS (8)
  1. AZATHIOPRINE. [Suspect]
     Active Substance: AZATHIOPRINE
     Indication: ULCERATIVE KERATITIS
     Route: 065
  2. METHYLPREDNISOLONE. [Suspect]
     Active Substance: METHYLPREDNISOLONE
     Indication: ULCERATIVE KERATITIS
     Route: 042
  3. PREDNISONE. [Suspect]
     Active Substance: PREDNISONE
     Indication: ULCERATIVE KERATITIS
     Dosage: 10 MG, UNK
     Route: 048
  4. DOXYCYCLINE. [Suspect]
     Active Substance: DOXYCYCLINE
     Indication: ANTIBIOTIC PROPHYLAXIS
     Route: 048
  5. PREDNISONE. [Suspect]
     Active Substance: PREDNISONE
     Dosage: 60 MG, UNK
     Route: 065
  6. MOXIFLOXACIN. [Suspect]
     Active Substance: MOXIFLOXACIN
     Indication: ANTIBIOTIC PROPHYLAXIS
     Route: 061
  7. PREDNISOLONE. [Suspect]
     Active Substance: PREDNISOLONE
     Indication: ULCERATIVE KERATITIS
     Dosage: FOUR TIMES A DAY
     Route: 061
  8. RITUXIMAB. [Suspect]
     Active Substance: RITUXIMAB
     Indication: ULCERATIVE KERATITIS
     Route: 065

REACTIONS (1)
  - Drug ineffective [Unknown]
